FAERS Safety Report 16452485 (Version 2)
Quarter: 2023Q2

REPORT INFORMATION
  Report Type: Spontaneous
  Country: US (occurrence: None)
  Receive Date: 20190619
  Receipt Date: 20230517
  Transmission Date: 20230722
  Serious: No
  Sender: FDA-Public Use
  Company Number: US-ROCHE-2137807

PATIENT
  Age: 66 Year
  Sex: Female

DRUGS (3)
  1. ACTEMRA [Suspect]
     Active Substance: TOCILIZUMAB
     Indication: Rheumatoid arthritis
     Dosage: 162 MG/0.9 ML?MOST RECENT DOSE: 06/JUN/2018
     Route: 065
     Dates: start: 20180606, end: 20180606
  2. ACTEMRA [Suspect]
     Active Substance: TOCILIZUMAB
     Dosage: 162 MG/0.9 ML
     Route: 065
     Dates: start: 201802
  3. ACTEMRA [Suspect]
     Active Substance: TOCILIZUMAB
     Indication: Product used for unknown indication
     Route: 058

REACTIONS (11)
  - Fatigue [Unknown]
  - Headache [Unknown]
  - Alopecia [Unknown]
  - Memory impairment [Unknown]
  - Confusional state [Unknown]
  - Acne [Unknown]
  - Pain [Unknown]
  - Constipation [Unknown]
  - Blood glucose decreased [Unknown]
  - Dizziness [Unknown]
  - Hyperhidrosis [Unknown]

NARRATIVE: CASE EVENT DATE: 20180606
